FAERS Safety Report 9450760 (Version 1)
Quarter: 2013Q3

REPORT INFORMATION
  Report Type: Spontaneous
  Country: US (occurrence: US)
  Receive Date: 20130809
  Receipt Date: 20130809
  Transmission Date: 20140515
  Serious: No
  Sender: FDA-Public Use
  Company Number: US-AMGEN-USASP2012068648

PATIENT
  Age: 67 Year
  Sex: Female

DRUGS (8)
  1. NEUPOGEN [Suspect]
     Indication: PRODUCT USED FOR UNKNOWN INDICATION
     Dosage: UNK
     Route: 065
  2. PEGASYS [Suspect]
     Indication: HEPATITIS C
     Dosage: 180 MUG, UNK
     Route: 058
     Dates: start: 20120920
  3. PEGASYS [Suspect]
     Dosage: 135 MUG, UNK
     Route: 058
  4. RIBAVIRIN [Suspect]
     Indication: HEPATITIS C
     Dosage: 800 MG, ONCE DAILY IN DIVIDED DOSES
     Route: 048
     Dates: start: 20120920
  5. RIBAVIRIN [Suspect]
     Dosage: 600 MG, QD
     Route: 048
  6. RIBAVIRIN [Suspect]
     Dosage: 800 MG, UNK
     Route: 048
  7. BOCEPREVIR [Suspect]
     Indication: HEPATITIS C
     Dosage: 800 MG, TID
     Dates: start: 20121025
  8. PROCRIT [Concomitant]
     Dosage: UNK

REACTIONS (10)
  - Herpes virus infection [Unknown]
  - Haemoglobin decreased [Unknown]
  - White blood cell count decreased [Unknown]
  - Pruritus [Unknown]
  - Pruritus [Unknown]
  - Asthenia [Unknown]
  - Platelet count decreased [Unknown]
  - Rash [Not Recovered/Not Resolved]
  - Pruritus [Not Recovered/Not Resolved]
  - Hypersensitivity [Unknown]
